FAERS Safety Report 24109635 (Version 1)
Quarter: 2024Q3

REPORT INFORMATION
  Report Type: Spontaneous
  Country: US (occurrence: US)
  Receive Date: 20240718
  Receipt Date: 20240718
  Transmission Date: 20241016
  Serious: Yes (Other)
  Sender: BAYER
  Company Number: US-BAYER-2024A101432

PATIENT
  Age: 15 Year
  Sex: Male

DRUGS (1)
  1. JIVI [Suspect]
     Active Substance: DAMOCTOCOG ALFA PEGOL
     Indication: Factor VIII deficiency
     Dosage: 3000 IU, OW
     Route: 042
     Dates: start: 202301

REACTIONS (1)
  - Traumatic haemorrhage [None]

NARRATIVE: CASE EVENT DATE: 20240701
